FAERS Safety Report 6749101-3 (Version None)
Quarter: 2010Q2

REPORT INFORMATION
  Report Type: 
  Country: None (occurrence: None)
  Receive Date: 20100601
  Receipt Date: 20100527
  Transmission Date: 20101027
  Serious: Yes (Disabling, Other)
  Sender: FDA-Public Use
  Company Number: DE-SANOFI-AVENTIS-2010SA005345

PATIENT
  Age: 79 Year
  Sex: Male
  Weight: 90 kg

DRUGS (8)
  1. MULTAQ [Suspect]
     Route: 048
     Dates: start: 20100119
  2. METOHEXAL [Concomitant]
     Indication: ATRIAL FIBRILLATION
     Route: 048
  3. SIMVASTATIN [Concomitant]
     Route: 048
     Dates: start: 19950101
  4. SIMVASTATIN [Concomitant]
     Route: 048
     Dates: start: 19950101
  5. RAMIPRIL [Concomitant]
     Indication: DRUG USE FOR UNKNOWN INDICATION
     Route: 048
  6. ASPIRIN [Concomitant]
     Route: 048
     Dates: start: 19950101
  7. MARCUMAR [Concomitant]
     Indication: DRUG USE FOR UNKNOWN INDICATION
     Route: 048
  8. LEVOTHYROXINE SODIUM [Concomitant]
     Indication: HYPOTHYROIDISM
     Route: 048

REACTIONS (5)
  - CARDIAC FAILURE [None]
  - DYSPNOEA EXERTIONAL [None]
  - FATIGUE [None]
  - SINUS BRADYCARDIA [None]
  - WEIGHT INCREASED [None]
